FAERS Safety Report 21153946 (Version 3)
Quarter: 2024Q1

REPORT INFORMATION
  Report Type: Spontaneous
  Country: JP (occurrence: JP)
  Receive Date: 20220801
  Receipt Date: 20240205
  Transmission Date: 20240410
  Serious: Yes (Other)
  Sender: FDA-Public Use
  Company Number: JP-CHEPLA-2022006533

PATIENT
  Sex: Female

DRUGS (11)
  1. LOCOID [Suspect]
     Active Substance: HYDROCORTISONE BUTYRATE
     Indication: Pruritus
     Route: 061
  2. LOCOID [Suspect]
     Active Substance: HYDROCORTISONE BUTYRATE
     Indication: Nasal pruritus
  3. LOCOID [Suspect]
     Active Substance: HYDROCORTISONE BUTYRATE
     Indication: Dermatitis contact
  4. PETROLATUM [Concomitant]
     Active Substance: PETROLATUM
     Indication: Dry skin
     Route: 061
  5. PETROLATUM [Concomitant]
     Active Substance: PETROLATUM
     Indication: Pruritus
  6. PETROLATUM [Concomitant]
     Active Substance: PETROLATUM
     Indication: Nasal pruritus
  7. PETROLATUM [Concomitant]
     Active Substance: PETROLATUM
     Indication: Dermatitis contact
  8. URAPIDIL [Concomitant]
     Active Substance: URAPIDIL
     Indication: Product used for unknown indication
     Route: 048
  9. RINDERON A [Concomitant]
     Active Substance: BETAMETHASONE SODIUM PHOSPHATE\NEOMYCIN SULFATE
     Indication: Eyelid erosion
     Route: 061
  10. HYALURONATE SODIUM [Concomitant]
     Active Substance: HYALURONATE SODIUM
     Indication: Product used for unknown indication
     Route: 047
  11. FLUOROMETHOLONE [Concomitant]
     Active Substance: FLUOROMETHOLONE
     Indication: Product used for unknown indication
     Route: 047

REACTIONS (9)
  - Dermatitis bullous [Unknown]
  - Skin exfoliation [Unknown]
  - Mass [Unknown]
  - Effusion [Unknown]
  - Eczema [Unknown]
  - COVID-19 [Unknown]
  - Dermatitis contact [Unknown]
  - Pruritus [Unknown]
  - Physical deconditioning [Unknown]
